FAERS Safety Report 25595154 (Version 1)
Quarter: 2025Q3

REPORT INFORMATION
  Report Type: Report from Study
  Country: AU (occurrence: AU)
  Receive Date: 20250723
  Receipt Date: 20250723
  Transmission Date: 20251021
  Serious: Yes (Other)
  Sender: UCB
  Company Number: AU-UCBSA-2025030115

PATIENT
  Sex: Female

DRUGS (2)
  1. ZILUCOPLAN [Suspect]
     Active Substance: ZILUCOPLAN
     Indication: Myasthenia gravis
     Dosage: 23 MILLIGRAM, ONCE DAILY (QD)
     Route: 058
     Dates: start: 20250514, end: 2025
  2. RAVULIZUMAB [Concomitant]
     Active Substance: RAVULIZUMAB
     Indication: Myasthenia gravis
     Dates: start: 202505

REACTIONS (4)
  - Myasthenia gravis [Unknown]
  - Headache [Not Recovered/Not Resolved]
  - Drug ineffective [Unknown]
  - Treatment noncompliance [Unknown]

NARRATIVE: CASE EVENT DATE: 20250101
